FAERS Safety Report 7126573-6 (Version None)
Quarter: 2010Q4

REPORT INFORMATION
  Report Type: 
  Country: None (occurrence: None)
  Receive Date: 20101129
  Receipt Date: 20101116
  Transmission Date: 20110411
  Serious: Yes (Hospitalization)
  Sender: FDA-Public Use
  Company Number: CH-ASTRAZENECA-2010SE54817

PATIENT
  Age: 52 Year
  Sex: Male

DRUGS (3)
  1. SEROQUEL [Suspect]
     Dosage: 5 TABLETS
     Route: 048
     Dates: start: 20100512, end: 20100512
  2. WELLBUTRIN [Concomitant]
     Route: 048
  3. DEPAKENE [Concomitant]
     Route: 048

REACTIONS (2)
  - DRUG ABUSE [None]
  - INTENTIONAL OVERDOSE [None]
